FAERS Safety Report 25225600 (Version 1)
Quarter: 2025Q2

REPORT INFORMATION
  Report Type: Spontaneous
  Country: CA (occurrence: CA)
  Receive Date: 20250422
  Receipt Date: 20250422
  Transmission Date: 20250716
  Serious: Yes (Other)
  Sender: PFIZER
  Company Number: CA-PFIZER INC-202500083338

PATIENT
  Sex: Male

DRUGS (15)
  1. BACTERIOSTATIC SODIUM CHLORIDE [Suspect]
     Active Substance: SODIUM CHLORIDE
     Indication: Rhinitis allergic
     Route: 058
  2. PHENOL [Suspect]
     Active Substance: PHENOL
     Indication: Rhinitis allergic
     Route: 058
  3. ACER SACCHARUM POLLEN [Suspect]
     Active Substance: ACER SACCHARUM POLLEN
     Indication: Rhinitis allergic
     Route: 058
  4. ARTEMISIA VULGARIS ROOT [Suspect]
     Active Substance: ARTEMISIA VULGARIS ROOT
     Indication: Rhinitis allergic
     Route: 058
  5. HERBALS [Suspect]
     Active Substance: HERBALS
     Indication: Rhinitis allergic
     Route: 058
  6. PECAN [Suspect]
     Active Substance: PECAN
     Indication: Rhinitis allergic
     Route: 058
  7. FAGUS SYLVATICA NUT [Suspect]
     Active Substance: FAGUS SYLVATICA NUT
     Indication: Rhinitis allergic
     Route: 058
  8. FRAXINUS AMERICANA BARK [Suspect]
     Active Substance: FRAXINUS AMERICANA BARK
     Indication: Rhinitis allergic
     Route: 058
  9. BLACK WALNUT (JUGLANS NIGRA POLLEN) [Suspect]
     Active Substance: JUGLANS NIGRA POLLEN
     Indication: Rhinitis allergic
     Route: 058
  10. PLATANUS OCCIDENTALIS POLLEN [Suspect]
     Active Substance: PLATANUS OCCIDENTALIS POLLEN
     Indication: Rhinitis allergic
     Route: 058
  11. POPULUS DELTOIDES SUBSP. DELTOIDES POLLEN [Suspect]
     Active Substance: POPULUS DELTOIDES SUBSP. DELTOIDES POLLEN
     Indication: Rhinitis allergic
     Route: 058
  12. QUERCUS RUBRA POLLEN [Suspect]
     Active Substance: QUERCUS RUBRA POLLEN
     Indication: Rhinitis allergic
     Route: 058
  13. SALIX NIGRA BARK [Suspect]
     Active Substance: SALIX NIGRA BARK
     Indication: Rhinitis allergic
     Route: 058
  14. BETULA PENDULA POLLEN [Suspect]
     Active Substance: BETULA PENDULA POLLEN
     Indication: Rhinitis allergic
     Route: 058
  15. ULMUS AMERICANA POLLEN [Suspect]
     Active Substance: ULMUS AMERICANA POLLEN
     Indication: Rhinitis allergic
     Route: 058

REACTIONS (7)
  - Abdominal pain [Recovered/Resolved]
  - Anaphylactoid reaction [Recovered/Resolved]
  - Diarrhoea [Recovered/Resolved]
  - Nasal congestion [Recovered/Resolved]
  - Overdose [Recovered/Resolved]
  - Product label confusion [Recovered/Resolved]
  - Rash [Recovered/Resolved]
